FAERS Safety Report 17143740 (Version 1)
Quarter: 2019Q4

REPORT INFORMATION
  Report Type: Spontaneous
  Country: FR (occurrence: FR)
  Receive Date: 20191212
  Receipt Date: 20191212
  Transmission Date: 20200122
  Serious: Yes (Hospitalization)
  Sender: FDA-Public Use
  Company Number: FR-JNJFOC-20191214563

PATIENT
  Age: 78 Year
  Sex: Female
  Weight: 87 kg

DRUGS (1)
  1. RIVAROXABAN [Suspect]
     Active Substance: RIVAROXABAN
     Indication: ATRIAL FIBRILLATION
     Dosage: 15 MG, QOD
     Route: 048
     Dates: start: 201905, end: 20190801

REACTIONS (2)
  - Gastrointestinal haemorrhage [Not Recovered/Not Resolved]
  - Acquired Von Willebrand^s disease [Not Recovered/Not Resolved]

NARRATIVE: CASE EVENT DATE: 201906
